FAERS Safety Report 6204393-4 (Version None)
Quarter: 2009Q2

REPORT INFORMATION
  Report Type: 
  Country: None (occurrence: None)
  Receive Date: 20090527
  Receipt Date: 20090518
  Transmission Date: 20091009
  Serious: Yes (Death)
  Sender: FDA-Public Use
  Company Number: JP-BRISTOL-MYERS SQUIBB COMPANY-14629463

PATIENT
  Age: 42 Year
  Sex: Female

DRUGS (10)
  1. ABILIFY [Suspect]
     Indication: SCHIZOPHRENIA
     Dosage: ON 11MAY09 3MG/DAY
     Route: 048
     Dates: start: 20090128, end: 20090511
  2. INSULIN [Suspect]
     Indication: DIABETES MELLITUS
     Dosage: INJECTION
     Route: 058
  3. NORTRIPTYLINE HCL [Concomitant]
     Dosage: FORMULATION TABLET
  4. TETRAMIDE [Concomitant]
     Dosage: FORMULATION TABLET
  5. PAXIL [Concomitant]
     Dosage: FORMULATION TABLET
  6. FLUNITRAZEPAM [Concomitant]
     Dosage: FORMULATION TABLET
  7. NELBON [Concomitant]
     Dosage: FORMULATION TABLET
  8. MYSLEE [Concomitant]
     Dosage: FORMULATION TABLET
  9. VEGETAMIN A [Concomitant]
     Dosage: FORMULATION TABLET
  10. LEVOTOMIN [Concomitant]
     Dosage: FORMULATION TABLET

REACTIONS (1)
  - RESPIRATORY FAILURE [None]
